FAERS Safety Report 25980524 (Version 1)
Quarter: 2025Q4

REPORT INFORMATION
  Report Type: Report from Study
  Country: JP (occurrence: JP)
  Receive Date: 20251030
  Receipt Date: 20251030
  Transmission Date: 20260117
  Serious: Yes (Other)
  Sender: GUERBET
  Company Number: JP-GUERBETG_JAPAN-JP-20250177

PATIENT
  Age: 78 Year
  Sex: Female

DRUGS (2)
  1. LIPIODOL [Suspect]
     Active Substance: ETHIODIZED OIL
     Indication: Therapeutic embolisation
     Dosage: 2.5 ML OF HISTOACRYL (ENBUCRILATE) MIXED WITH 20% OF LIPIODOL
     Route: 042
  2. HISTOACRYL [Suspect]
     Active Substance: ENBUCRILATE
     Indication: Therapeutic embolisation
     Dosage: 2.5 ML OF HISTOACRYL (ENBUCRILATE) MIXED WITH 20% OF LIPIODOL
     Route: 042

REACTIONS (2)
  - Hepatic encephalopathy [Recovered/Resolved]
  - Hyperammonaemia [Recovered/Resolved]
